FAERS Safety Report 9793174 (Version 1)
Quarter: 2014Q1

REPORT INFORMATION
  Report Type: Spontaneous
  Country: CL (occurrence: CL)
  Receive Date: 20140102
  Receipt Date: 20140102
  Transmission Date: 20141002
  Serious: Yes (Other)
  Sender: FDA-Public Use
  Company Number: CL-PFIZER INC-2013372955

PATIENT
  Age: 80 Year
  Sex: Female

DRUGS (3)
  1. XALATAN [Suspect]
     Indication: GLAUCOMA
     Dosage: 1 DROP IN EACH EYE EVERY NIGHT
     Route: 047
     Dates: start: 2003
  2. CARVEDILOL [Concomitant]
     Dosage: 12.5 EVERY 12 HOURS
  3. CARDIOASPIRIN [Concomitant]
     Dosage: 100 MG, 1X/DAY

REACTIONS (2)
  - Cerebrovascular accident [Recovered/Resolved with Sequelae]
  - Hernia [Unknown]
